FAERS Safety Report 11291761 (Version 1)
Quarter: 2015Q3

REPORT INFORMATION
  Report Type: Spontaneous
  Country: US (occurrence: US)
  Receive Date: 20150722
  Receipt Date: 20150722
  Transmission Date: 20151125
  Serious: Yes (Other)
  Sender: FDA-Public Use
  Company Number: US-PFIZER INC-2015237916

PATIENT
  Age: 78 Year
  Sex: Female
  Weight: 44 kg

DRUGS (1)
  1. NEURONTIN [Suspect]
     Active Substance: GABAPENTIN
     Indication: PAIN IN EXTREMITY
     Dosage: 200 MG, 3X/DAY (9 IN THE MORNING, 3 IN THE AFTERNOON AND 9 IN THE EVENING)

REACTIONS (7)
  - Pain [Unknown]
  - Arthropathy [Unknown]
  - Staphylococcal infection [Unknown]
  - Decubitus ulcer [Unknown]
  - Limb discomfort [Unknown]
  - Wound [Unknown]
  - Product use issue [Unknown]
